FAERS Safety Report 8445119-3 (Version None)
Quarter: 2012Q2

REPORT INFORMATION
  Report Type: 
  Country: None (occurrence: None)
  Receive Date: 20120618
  Receipt Date: 20120608
  Transmission Date: 20120825
  Serious: Yes (Hospitalization, Other)
  Sender: FDA-Public Use
  Company Number: US-PFIZER INC-2010034403

PATIENT
  Sex: Female

DRUGS (2)
  1. DILANTIN [Suspect]
     Indication: GRAND MAL CONVULSION
     Dosage: 100 MG, 3X/DAY
     Route: 048
     Dates: start: 20070617, end: 20070720
  2. DILANTIN [Suspect]
     Dosage: UNK, 750MG/25ML
     Route: 042
     Dates: start: 20070617, end: 20070720

REACTIONS (1)
  - STEVENS-JOHNSON SYNDROME [None]
